FAERS Safety Report 8362856-X (Version None)
Quarter: 2012Q2

REPORT INFORMATION
  Report Type: 
  Country: None (occurrence: None)
  Receive Date: 20120516
  Receipt Date: 20120514
  Transmission Date: 20120825
  Serious: Yes (Death, Other)
  Sender: FDA-Public Use
  Company Number: PHHY2011CR76209

PATIENT
  Age: 81 Year
  Sex: Female

DRUGS (2)
  1. ATENOLOL [Concomitant]
     Dosage: 50 MG, PER DAY
     Route: 048
  2. EXELON [Suspect]
     Indication: SENILE DEMENTIA
     Dosage: 4.6 MG\24 HRS
     Route: 062

REACTIONS (3)
  - DEATH [None]
  - SOMNOLENCE [None]
  - CARDIAC FAILURE [None]
